FAERS Safety Report 9686354 (Version 2)
Quarter: 2014Q1

REPORT INFORMATION
  Report Type: Report from Study
  Country: JP (occurrence: JP)
  Receive Date: 20131113
  Receipt Date: 20140108
  Transmission Date: 20141002
  Serious: Yes (Other)
  Sender: FDA-Public Use
  Company Number: JP-VERTEX PHARMACEUTICALS INC-2013-010991

PATIENT
  Age: 47 Year
  Sex: Male

DRUGS (7)
  1. VX-950 (TELAPREVIR) [Suspect]
     Indication: CHRONIC HEPATITIS C
     Dosage: 2250 MG, QD
     Route: 048
     Dates: start: 20120906, end: 20121128
  2. RIBAVIRIN [Suspect]
     Indication: CHRONIC HEPATITIS C
     Dosage: 800 MG, QD
     Route: 048
     Dates: start: 20120906, end: 20120920
  3. RIBAVIRIN [Suspect]
     Dosage: 600 MG, QD
     Route: 048
     Dates: start: 20120921, end: 20120927
  4. RIBAVIRIN [Suspect]
     Dosage: 400 MG, UNK
     Route: 048
     Dates: start: 20120928
  5. PEGINTERFERON ALFA-2B [Suspect]
     Indication: CHRONIC HEPATITIS C
     Dosage: 1.5 ?G/KG, QW
     Route: 058
     Dates: start: 20120906, end: 20121101
  6. PEGINTERFERON ALFA-2B [Suspect]
     Dosage: 1.3 ?G/KG, QW
     Route: 058
     Dates: start: 20121102
  7. VOLTAREN [Concomitant]
     Dosage: 25 MG, QD
     Route: 048
     Dates: start: 20120906

REACTIONS (1)
  - White blood cell count decreased [Recovered/Resolved]
